FAERS Safety Report 23642695 (Version 3)
Quarter: 2025Q1

REPORT INFORMATION
  Report Type: Spontaneous
  Country: US (occurrence: US)
  Receive Date: 20240318
  Receipt Date: 20250218
  Transmission Date: 20250408
  Serious: Yes (Death, Hospitalization, Other)
  Sender: GLAXOSMITHKLINE
  Company Number: US-GLAXOSMITHKLINE-US2024AMR034125

PATIENT

DRUGS (1)
  1. ADVAIR HFA [Suspect]
     Active Substance: FLUTICASONE PROPIONATE\SALMETEROL XINAFOATE
     Indication: Asthma
     Dosage: UNK, QD

REACTIONS (6)
  - Asthma [Fatal]
  - Brain death [Unknown]
  - Loss of consciousness [Unknown]
  - Apallic syndrome [Unknown]
  - Cyanosis [Unknown]
  - Pulse absent [Unknown]

NARRATIVE: CASE EVENT DATE: 20240101
